FAERS Safety Report 17735993 (Version 2)
Quarter: 2020Q2

REPORT INFORMATION
  Report Type: Spontaneous
  Country: GB (occurrence: GB)
  Receive Date: 20200501
  Receipt Date: 20200507
  Transmission Date: 20200714
  Serious: Yes (Hospitalization)
  Sender: FDA-Public Use
  Company Number: GB-EISAI MEDICAL RESEARCH-EC-2020-073725

PATIENT
  Age: 14 Year
  Sex: Female
  Weight: 31 kg

DRUGS (12)
  1. COTRIMOXAZOLE [Concomitant]
     Active Substance: SULFAMETHOXAZOLE\TRIMETHOPRIM
     Indication: PRODUCT USED FOR UNKNOWN INDICATION
     Dosage: 960 MG, TWICE WEEKLY
  2. LENVATINIB [Suspect]
     Active Substance: LENVATINIB
     Route: 048
     Dates: start: 20200421
  3. OMEPRAZOLE. [Concomitant]
     Active Substance: OMEPRAZOLE
     Indication: PRODUCT USED FOR UNKNOWN INDICATION
  4. LEVETIRACETAM. [Concomitant]
     Active Substance: LEVETIRACETAM
     Indication: PRODUCT USED FOR UNKNOWN INDICATION
  5. IFOSFAMIDE. [Suspect]
     Active Substance: IFOSFAMIDE
     Indication: OSTEOSARCOMA METASTATIC
     Dosage: DOSAGE AND FREQUENCY UNKNOWN
  6. CHOLECALCIFEROL [Concomitant]
     Active Substance: CHOLECALCIFEROL
     Indication: PRODUCT USED FOR UNKNOWN INDICATION
  7. MELATONIN [Concomitant]
     Active Substance: MELATONIN
     Indication: PRODUCT USED FOR UNKNOWN INDICATION
  8. METOCLOPRAMIDE. [Concomitant]
     Active Substance: METOCLOPRAMIDE
     Indication: PRODUCT USED FOR UNKNOWN INDICATION
  9. NORETHISTERONE [Concomitant]
     Active Substance: NORETHINDRONE
     Indication: PRODUCT USED FOR UNKNOWN INDICATION
  10. LEVOTHYROXINE. [Concomitant]
     Active Substance: LEVOTHYROXINE
     Indication: PRODUCT USED FOR UNKNOWN INDICATION
  11. LENVATINIB [Suspect]
     Active Substance: LENVATINIB
     Indication: OSTEOSARCOMA METASTATIC
     Route: 048
     Dates: start: 20200218, end: 20200412
  12. ETOPOSIDE. [Suspect]
     Active Substance: ETOPOSIDE
     Indication: OSTEOSARCOMA METASTATIC
     Dosage: DOSAGE AND FREQUENCY UNKNOWN

REACTIONS (16)
  - Hypoxia [Recovered/Resolved]
  - Respiratory syncytial virus infection [Unknown]
  - Anaemia [Unknown]
  - Pleural effusion [Recovered/Resolved]
  - Pyrexia [Recovered/Resolved]
  - Urine output decreased [Unknown]
  - Dyspnoea [Unknown]
  - Hypophagia [Unknown]
  - Acute kidney injury [Unknown]
  - Bone marrow failure [Unknown]
  - Oesophagitis [Recovered/Resolved]
  - Vomiting [Recovered/Resolved]
  - Mucosal inflammation [Unknown]
  - Respiratory distress [Recovered/Resolved]
  - Dehydration [Recovered/Resolved]
  - Escherichia urinary tract infection [Unknown]

NARRATIVE: CASE EVENT DATE: 2020
